FAERS Safety Report 24375368 (Version 1)
Quarter: 2024Q3

REPORT INFORMATION
  Report Type: Spontaneous
  Country: US (occurrence: US)
  Receive Date: 20240928
  Receipt Date: 20240928
  Transmission Date: 20241017
  Serious: No
  Sender: TEVA
  Company Number: US-TEVA-VS-3248110

PATIENT
  Age: 72 Year
  Sex: Male

DRUGS (1)
  1. AUSTEDO [Suspect]
     Active Substance: DEUTETRABENAZINE
     Indication: Tourette^s disorder
     Dosage: 4 TABLETS 12MG TWICE A DAY
     Route: 065
     Dates: start: 2024

REACTIONS (4)
  - Restlessness [Unknown]
  - Irritability [Unknown]
  - Product use in unapproved indication [Unknown]
  - Nervousness [Unknown]

NARRATIVE: CASE EVENT DATE: 20240101
